FAERS Safety Report 6404017-7 (Version None)
Quarter: 2009Q4

REPORT INFORMATION
  Report Type: 
  Country: None (occurrence: None)
  Receive Date: 20091016
  Receipt Date: 20090717
  Transmission Date: 20100525
  Serious: No
  Sender: FDA-Public Use
  Company Number: US-ALEXION-A200900586

PATIENT
  Sex: Female

DRUGS (6)
  1. SOLIRIS [Suspect]
     Indication: PAROXYSMAL NOCTURNAL HAEMOGLOBINURIA
     Dosage: 600 MG, UNK
     Route: 042
     Dates: start: 20090310
  2. SOLIRIS [Suspect]
     Dosage: 900 MG, UNK
     Route: 042
  3. TRANXENE [Concomitant]
     Indication: ANXIETY
     Dosage: 7.5 MG, UNK
     Route: 048
  4. PROCRIT                            /00909301/ [Concomitant]
     Indication: ANAEMIA
     Dosage: 40000 IU, UNK
     Dates: end: 20090617
  5. NEUPOGEN [Concomitant]
     Indication: WHITE BLOOD CELL COUNT DECREASED
     Dosage: 300 UG, UNK
     Dates: end: 20090602
  6. FOLIC ACID [Concomitant]
     Indication: PAROXYSMAL NOCTURNAL HAEMOGLOBINURIA
     Dosage: 1 MG, UNK
     Route: 048

REACTIONS (2)
  - FLUSHING [None]
  - PRURITUS [None]
